FAERS Safety Report 23330659 (Version 2)
Quarter: 2024Q1

REPORT INFORMATION
  Report Type: Spontaneous
  Country: US (occurrence: US)
  Receive Date: 20231222
  Receipt Date: 20240206
  Transmission Date: 20240409
  Serious: No
  Sender: FDA-Public Use
  Company Number: US-SA-SAC20231220000103

PATIENT
  Age: 61 Year
  Sex: Male

DRUGS (2)
  1. DUPIXENT [Suspect]
     Active Substance: DUPILUMAB
     Indication: Neurodermatitis
     Dosage: 300 MG, QOW
     Route: 058
  2. DUPIXENT [Suspect]
     Active Substance: DUPILUMAB
     Dosage: 300 MG, QD
     Route: 058

REACTIONS (5)
  - Contusion [Unknown]
  - Iron deficiency [Unknown]
  - Skin disorder [Recovered/Resolved]
  - Therapeutic response decreased [Unknown]
  - Inappropriate schedule of product administration [Unknown]
